FAERS Safety Report 22324432 (Version 1)
Quarter: 2023Q2

REPORT INFORMATION
  Report Type: Report from Study
  Country: EG (occurrence: EG)
  Receive Date: 20230516
  Receipt Date: 20230516
  Transmission Date: 20230721
  Serious: Yes (Other)
  Sender: FDA-Public Use
  Company Number: EG-002147023-NVSC2023EG107540

PATIENT
  Age: 26 Year
  Sex: Male

DRUGS (6)
  1. GILENYA [Suspect]
     Active Substance: FINGOLIMOD HYDROCHLORIDE
     Indication: Multiple sclerosis
     Dosage: 1 DOSAGE FORM, QD
     Route: 048
     Dates: start: 20200614
  2. PREXAL [Concomitant]
     Indication: Bipolar disorder
     Dosage: 1 DOSAGE FORM, QD,  IN INTERMITTENT  MANNER, STOPPED AFTER 20 DAYS
     Route: 048
     Dates: start: 20221118
  3. PRIANIL [Concomitant]
     Indication: Bipolar disorder
     Dosage: 1 DOSAGE FORM, QD, IN INTERMITTENT MANNER, STOPPED AFTER 20 DAYS
     Route: 065
     Dates: start: 20221118
  4. LAMICTAL [Concomitant]
     Active Substance: LAMOTRIGINE
     Indication: Bipolar disorder
     Dosage: 1 DOSAGE FORM, QD
     Route: 048
     Dates: start: 20230414, end: 20230428
  5. SEROQUEL [Concomitant]
     Active Substance: QUETIAPINE FUMARATE
     Indication: Bipolar disorder
     Dosage: 1 DOSAGE FORM, QD
     Route: 048
     Dates: start: 20230414
  6. URIPAN [Concomitant]
     Indication: Micturition urgency
     Dosage: 1 DOSAGE FORM, QD
     Route: 048
     Dates: start: 20230414

REACTIONS (1)
  - Rash [Recovering/Resolving]

NARRATIVE: CASE EVENT DATE: 20230401
